FAERS Safety Report 7573420-4 (Version None)
Quarter: 2011Q2

REPORT INFORMATION
  Report Type: 
  Country: None (occurrence: None)
  Receive Date: 20110627
  Receipt Date: 20110511
  Transmission Date: 20111010
  Serious: Yes (Hospitalization, Other)
  Sender: FDA-Public Use
  Company Number: A0926989A

PATIENT
  Sex: Female

DRUGS (2)
  1. EFFEXOR [Concomitant]
  2. LAMICTAL XR [Suspect]
     Route: 048

REACTIONS (1)
  - RASH [None]
